FAERS Safety Report 22006664 (Version 1)
Quarter: 2023Q1

REPORT INFORMATION
  Report Type: Spontaneous
  Country: NL (occurrence: NL)
  Receive Date: 20230217
  Receipt Date: 20230217
  Transmission Date: 20230417
  Serious: Yes (Life-Threatening, Disabling)
  Sender: FDA-Public Use
  Company Number: None

PATIENT
  Sex: Female
  Weight: 75 kg

DRUGS (2)
  1. ALPRAZOLAM [Suspect]
     Active Substance: ALPRAZOLAM
     Indication: Anxiety disorder
     Dosage: 1 DOSAGE FORM (2)
     Route: 065
     Dates: start: 20200915
  2. OXYCODONE [Concomitant]
     Active Substance: OXYCODONE
     Dosage: CAPSULE, 20 MG (MILLIGRAM)
     Route: 065

REACTIONS (2)
  - Feeling abnormal [Recovering/Resolving]
  - Dysarthria [Recovering/Resolving]
